FAERS Safety Report 4531240-9 (Version None)
Quarter: 2004Q4

REPORT INFORMATION
  Report Type: 
  Country: None (occurrence: None)
  Receive Date: 20041216
  Receipt Date: 20041126
  Transmission Date: 20050328
  Serious: Yes (Death)
  Sender: FDA-Public Use
  Company Number: GBS041116044

PATIENT
  Sex: Female

DRUGS (1)
  1. FLUOXETINE [Suspect]
     Dates: start: 20040210

REACTIONS (3)
  - AGITATION [None]
  - BRONCHOPNEUMONIA [None]
  - CONFUSIONAL STATE [None]
